FAERS Safety Report 11735345 (Version 1)
Quarter: 2015Q4

REPORT INFORMATION
  Report Type: Report from Study
  Country: DE (occurrence: CO)
  Receive Date: 20151113
  Receipt Date: 20151113
  Transmission Date: 20160304
  Serious: Yes (Other)
  Sender: FDA-Public Use
  Company Number: DE-ACTELION-A-US2015-127150

PATIENT
  Age: 52 Year
  Sex: Female

DRUGS (2)
  1. VENTAVIS [Suspect]
     Active Substance: ILOPROST
     Indication: PULMONARY HYPERTENSION
     Dosage: 1 DF, 6ID
     Route: 055
     Dates: start: 20130313, end: 201510
  2. BOSENTAN [Concomitant]
     Active Substance: BOSENTAN
     Dosage: UNK

REACTIONS (4)
  - Pulmonary mass [Unknown]
  - Productive cough [Unknown]
  - Feeling abnormal [Unknown]
  - Rash generalised [Unknown]
